FAERS Safety Report 18558984 (Version 1)
Quarter: 2020Q4

REPORT INFORMATION
  Report Type: Spontaneous
  Country: US (occurrence: US)
  Receive Date: 20201126
  Receipt Date: 20201126
  Transmission Date: 20210114
  Serious: Yes (Life-Threatening, Disabling, Other)
  Sender: FDA-Public Use
  Company Number: None

PATIENT
  Age: 34 Year
  Sex: Male
  Weight: 83.25 kg

DRUGS (3)
  1. ADDERALL XR [Suspect]
     Active Substance: AMPHETAMINE ASPARTATE\AMPHETAMINE SULFATE\DEXTROAMPHETAMINE SACCHARATE\DEXTROAMPHETAMINE SULFATE
     Indication: ATTENTION DEFICIT HYPERACTIVITY DISORDER
     Dosage: ?          QUANTITY:90 TABLET(S);?
     Route: 048
  2. XANAX [Concomitant]
     Active Substance: ALPRAZOLAM
  3. GABEOENTIN [Concomitant]

REACTIONS (9)
  - Affective disorder [None]
  - Aggression [None]
  - Hallucination [None]
  - Loss of consciousness [None]
  - Theft [None]
  - Autoscopy [None]
  - Mental status changes [None]
  - Impulsive behaviour [None]
  - Delusion [None]

NARRATIVE: CASE EVENT DATE: 20201009
